FAERS Safety Report 19950114 (Version 1)
Quarter: 2021Q4

REPORT INFORMATION
  Report Type: Report from Study
  Country: FR (occurrence: FR)
  Receive Date: 20211013
  Receipt Date: 20211013
  Transmission Date: 20220304
  Serious: Yes (Hospitalization, Other)
  Sender: FDA-Public Use
  Company Number: FR-ROCHE-2218979

PATIENT
  Age: 85 Year
  Sex: Female
  Weight: 77 kg

DRUGS (6)
  1. BEVACIZUMAB [Suspect]
     Active Substance: BEVACIZUMAB
     Indication: Pancreatic carcinoma
     Dosage: CYCLE NUMBER: 1?LAST DOSE BEFORE SAE: 12/DEC/2017?LAST DOSE BEFORE SAE: 04/NOV/2019
     Route: 042
     Dates: start: 20171212, end: 20171212
  2. BEVACIZUMAB [Suspect]
     Active Substance: BEVACIZUMAB
     Dosage: LAST CYCLE NUMBER BEFORE EVENT: 3
     Route: 042
     Dates: start: 20180124, end: 20180124
  3. BEVACIZUMAB [Suspect]
     Active Substance: BEVACIZUMAB
     Dosage: LAST CYCLE NUMBER BEFORE EVENT: 2
     Route: 042
     Dates: start: 20171227, end: 20171227
  4. FLUOROURACIL [Suspect]
     Active Substance: FLUOROURACIL
     Indication: Product used for unknown indication
     Dosage: LAST DOSE PRIOR TO SAE: 24/JAN/2018?LAST DOSE PRIOR TO SAE: 04/NOV/2019
     Route: 042
     Dates: start: 20171212
  5. IRINOTECAN [Suspect]
     Active Substance: IRINOTECAN
     Indication: Product used for unknown indication
     Dosage: LAST DOSE PRIOR TO SAE: 24/JAN/2018?LAST DOSE PRIOR TO SAE: 04/NOV/2019
     Route: 042
     Dates: start: 20171212
  6. LEVOLEUCOVORIN CALCIUM [Suspect]
     Active Substance: LEVOLEUCOVORIN CALCIUM
     Indication: Product used for unknown indication
     Dosage: 400 MG/M2, 200 MG/M2?LAST DOSE PRIOR TO SAE: 24/JAN/2018?LAST DOSE PRIOR TO SAE: 04/NOV/2019
     Route: 042
     Dates: start: 20171212

REACTIONS (3)
  - Neutropenia [Recovered/Resolved]
  - Femur fracture [Recovered/Resolved]
  - Radius fracture [Unknown]

NARRATIVE: CASE EVENT DATE: 20180115
